FAERS Safety Report 15967819 (Version 7)
Quarter: 2019Q2

REPORT INFORMATION
  Report Type: Report from Study
  Country: KR (occurrence: KR)
  Receive Date: 20190215
  Receipt Date: 20190426
  Transmission Date: 20190711
  Serious: Yes (Hospitalization)
  Sender: FDA-Public Use
  Company Number: KR-PFIZER INC-2019060890

PATIENT
  Age: 58 Year
  Sex: Male
  Weight: 75 kg

DRUGS (18)
  1. MAGNESIUM OXIDE. [Concomitant]
     Active Substance: MAGNESIUM OXIDE
     Indication: CONSTIPATION
     Dosage: 250 MG, TID
     Route: 048
     Dates: start: 20180608
  2. DUROGESIC D-TRANS [Concomitant]
     Active Substance: FENTANYL
     Indication: TUMOUR PAIN
     Dosage: 12 UG/HR, Q3D
     Route: 048
     Dates: start: 20180711
  3. PROCTOSEDYL [Concomitant]
     Active Substance: DIBUCAINE HYDROCHLORIDE\HYDROCORTISONE
     Indication: CONSTIPATION
     Dosage: 15 G, PRN
     Route: 061
     Dates: start: 20190123
  4. DIVALTAN [Concomitant]
     Indication: HYPERTENSION
     Dosage: 40 MG, QD
     Route: 048
     Dates: start: 2015
  5. INLYTA [Suspect]
     Active Substance: AXITINIB
     Indication: NON-SMALL CELL LUNG CANCER
     Dosage: 5 MG, 2X/DAY
     Route: 048
     Dates: start: 20181212, end: 20190204
  6. URSA [Concomitant]
     Active Substance: URSODIOL
     Indication: ALANINE AMINOTRANSFERASE INCREASED
     Dosage: 100 MG, TID
     Route: 048
     Dates: start: 20190123
  7. XANAX [Concomitant]
     Active Substance: ALPRAZOLAM
     Indication: INSOMNIA
     Dosage: 0.25 MG, QD
     Route: 048
     Dates: start: 20181005
  8. CHOLINE FENOFIBRATE [Concomitant]
     Active Substance: CHOLINE FENOFIBRATE
     Indication: HYPERLIPIDAEMIA
     Dosage: 0.178 G, QD
     Route: 048
     Dates: start: 2015
  9. METFORMIN HYDROCHLORIDE. [Concomitant]
     Active Substance: METFORMIN HYDROCHLORIDE
     Indication: DIABETES MELLITUS
     Dosage: 500 MG, QD
     Route: 048
     Dates: start: 201810
  10. AVELUMAB [Suspect]
     Active Substance: AVELUMAB
     Indication: NON-SMALL CELL LUNG CANCER
     Dosage: 800 MG, EVERY 2 WEEKS
     Route: 042
     Dates: start: 20181212, end: 20190123
  11. LYRICA [Concomitant]
     Active Substance: PREGABALIN
     Indication: PARAESTHESIA
     Dosage: 150 MG, 2X/DAY
     Route: 048
     Dates: start: 20181120
  12. ASPIRIN. [Concomitant]
     Active Substance: ASPIRIN
     Indication: HYPERLIPIDAEMIA
     Dosage: 100 MG, QD
     Route: 048
     Dates: start: 2015
  13. NEURONTIN [Concomitant]
     Active Substance: GABAPENTIN
     Indication: PARAESTHESIA
     Dosage: 100 MG, TID
     Route: 048
     Dates: start: 20170821
  14. PITAVASTATIN CALCIUM [Concomitant]
     Active Substance: PITAVASTATIN CALCIUM
     Indication: HYPERLIPIDAEMIA
     Dosage: 2 MG, QD
     Route: 048
     Dates: start: 2015
  15. NUCYNTA ER [Concomitant]
     Active Substance: TAPENTADOL HYDROCHLORIDE
     Indication: TUMOUR PAIN
     Dosage: 100 MG, 2X/DAY
     Route: 048
     Dates: start: 20181120
  16. GLIATILIN [Concomitant]
     Active Substance: CHOLINE ALFOSCERATE
     Indication: INSOMNIA
     Dosage: 400 MG, BID
     Route: 048
     Dates: start: 20170310
  17. URSA [Concomitant]
     Active Substance: URSODIOL
     Indication: ASPARTATE AMINOTRANSFERASE INCREASED
  18. MANNITOL. [Concomitant]
     Active Substance: MANNITOL
     Indication: MUSCULAR WEAKNESS
     Dosage: 100 MG, QD
     Route: 042
     Dates: start: 20190123, end: 20190125

REACTIONS (1)
  - Liver function test increased [Recovered/Resolved]

NARRATIVE: CASE EVENT DATE: 20190204
